FAERS Safety Report 21744620 (Version 1)
Quarter: 2022Q4

REPORT INFORMATION
  Report Type: Spontaneous
  Country: PL (occurrence: PL)
  Receive Date: 20221218
  Receipt Date: 20221218
  Transmission Date: 20230113
  Serious: Yes (Death, Hospitalization)
  Sender: FDA-Public Use
  Company Number: PL-STRIDES ARCOLAB LIMITED-2022SP016960

PATIENT
  Age: 67 Year
  Sex: Male

DRUGS (3)
  1. PREDNISOLONE [Suspect]
     Active Substance: PREDNISOLONE
     Indication: Heart transplant
     Dosage: UNK
     Route: 065
  2. TACROLIMUS [Suspect]
     Active Substance: TACROLIMUS
     Indication: Heart transplant
     Dosage: UNK
     Route: 065
  3. MYCOPHENOLATE MOFETIL [Suspect]
     Active Substance: MYCOPHENOLATE MOFETIL
     Indication: Heart transplant
     Dosage: UNK
     Route: 065

REACTIONS (11)
  - Renal cortical necrosis [Fatal]
  - Gastrointestinal necrosis [Fatal]
  - Renal papillary necrosis [Fatal]
  - Gastrointestinal mucormycosis [Fatal]
  - Gastrointestinal gangrene [Fatal]
  - Fungal sepsis [Fatal]
  - Pancreatitis [Unknown]
  - Mucormycosis [Unknown]
  - Bronchopulmonary aspergillosis [Unknown]
  - Aspergillus infection [Unknown]
  - Fungal infection [Unknown]
